FAERS Safety Report 8244648-5 (Version None)
Quarter: 2012Q1

REPORT INFORMATION
  Report Type: 
  Country: None (occurrence: None)
  Receive Date: 20120329
  Receipt Date: 20111201
  Transmission Date: 20120608
  Serious: No
  Sender: FDA-Public Use
  Company Number: US-MYLANLABS-2011S1024851

PATIENT
  Age: 27 Year
  Sex: Male

DRUGS (2)
  1. TRAMADOL [Concomitant]
     Indication: BREAKTHROUGH PAIN
     Route: 048
  2. FENTANYL-100 [Suspect]
     Indication: TESTICULAR PAIN
     Dosage: CHANGED Q72H
     Route: 062
     Dates: start: 20111125

REACTIONS (11)
  - DRUG EFFECT DECREASED [None]
  - DRUG WITHDRAWAL SYNDROME [None]
  - TREMOR [None]
  - DRUG EFFECT INCREASED [None]
  - EUPHORIC MOOD [None]
  - MIGRAINE [None]
  - VOMITING [None]
  - APPLICATION SITE ERYTHEMA [None]
  - MUSCLE RIGIDITY [None]
  - MOOD SWINGS [None]
  - TESTICULAR PAIN [None]
